FAERS Safety Report 9074880 (Version 2)
Quarter: 2013Q2

REPORT INFORMATION
  Report Type: Spontaneous
  Country: US (occurrence: US)
  Receive Date: 20130129
  Receipt Date: 20130418
  Transmission Date: 20140414
  Serious: Yes (Other)
  Sender: FDA-Public Use
  Company Number: US-TEVA-382542USA

PATIENT
  Age: 24 Year
  Sex: Female
  Weight: 49.03 kg

DRUGS (1)
  1. PARAGARD 380A [Suspect]
     Indication: CONTRACEPTION
     Route: 015
     Dates: start: 20120120, end: 20120616

REACTIONS (16)
  - Device related infection [Not Recovered/Not Resolved]
  - Vaginitis bacterial [Unknown]
  - Vaginal haemorrhage [Recovered/Resolved]
  - Pelvic inflammatory disease [Not Recovered/Not Resolved]
  - Menometrorrhagia [Recovered/Resolved]
  - Menorrhagia [Not Recovered/Not Resolved]
  - Abdominal pain [Recovered/Resolved]
  - Pelvic pain [Not Recovered/Not Resolved]
  - Vaginal discharge [Not Recovered/Not Resolved]
  - Device misuse [Recovered/Resolved]
  - Dyspareunia [Not Recovered/Not Resolved]
  - Cervix inflammation [Not Recovered/Not Resolved]
  - Abdominal pain [Not Recovered/Not Resolved]
  - Vaginal disorder [Unknown]
  - Back pain [Not Recovered/Not Resolved]
  - Ovarian cyst [Unknown]
